FAERS Safety Report 7503276-7 (Version None)
Quarter: 2011Q2

REPORT INFORMATION
  Report Type: 
  Country: None (occurrence: None)
  Receive Date: 20110525
  Receipt Date: 20110518
  Transmission Date: 20111010
  Serious: Yes (Hospitalization, Other)
  Sender: FDA-Public Use
  Company Number: US-JNJFOC-20110200817

PATIENT
  Sex: Female

DRUGS (6)
  1. LEVAQUIN [Suspect]
     Indication: PNEUMONIA
     Route: 048
     Dates: start: 20090201, end: 20090301
  2. METHYLPREDNISOLONE [Suspect]
     Indication: ARTHRITIS
     Route: 065
  3. PREDNISONE [Suspect]
     Indication: PRODUCT USED FOR UNKNOWN INDICATION
     Route: 048
  4. LEVAQUIN [Suspect]
     Indication: BRONCHITIS
     Route: 048
     Dates: start: 20090201, end: 20090301
  5. LEVAQUIN [Suspect]
     Indication: ORAL INFECTION
     Route: 048
     Dates: start: 20090201, end: 20090301
  6. LEVAQUIN [Suspect]
     Indication: SINUSITIS
     Route: 048
     Dates: start: 20090201, end: 20090301

REACTIONS (3)
  - ROTATOR CUFF SYNDROME [None]
  - LIMB INJURY [None]
  - TENDON RUPTURE [None]
